FAERS Safety Report 4971369-4 (Version None)
Quarter: 2006Q2

REPORT INFORMATION
  Report Type: 
  Country: None (occurrence: None)
  Receive Date: 20060406
  Receipt Date: 20060324
  Transmission Date: 20061013
  Serious: Yes (Other)
  Sender: FDA-Public Use
  Company Number: 2006041879

PATIENT
  Age: 66 Year
  Sex: Female

DRUGS (1)
  1. PIROXICAM [Suspect]
     Indication: JOINT SPRAIN

REACTIONS (16)
  - ATROPHY [None]
  - EMBOLIA CUTIS MEDICAMENTOSA [None]
  - HAEMORRHAGE [None]
  - HYPOAESTHESIA [None]
  - IMPAIRED HEALING [None]
  - INJECTION SITE PAIN [None]
  - INJECTION SITE REACTION [None]
  - KERATITIS HERPETIC [None]
  - LIVIDITY [None]
  - NEUROPATHY [None]
  - PARAESTHESIA [None]
  - PERONEAL NERVE INJURY [None]
  - SCAR [None]
  - SENSORY LOSS [None]
  - SKIN LESION [None]
  - SKIN NECROSIS [None]
